FAERS Safety Report 5579195-2 (Version None)
Quarter: 2008Q1

REPORT INFORMATION
  Report Type: 
  Country: None (occurrence: None)
  Receive Date: 20080102
  Receipt Date: 20071227
  Transmission Date: 20080703
  Serious: Yes (Hospitalization)
  Sender: FDA-Public Use
  Company Number: B0498268A

PATIENT
  Age: 54 Year
  Sex: Male

DRUGS (10)
  1. PAXIL [Suspect]
     Indication: DEPRESSION
     Dosage: 10MG SEE DOSAGE TEXT
     Route: 048
     Dates: start: 20070827, end: 20071122
  2. AMOXAN [Concomitant]
     Indication: DEPRESSION
     Dosage: 30MG PER DAY
     Route: 048
     Dates: start: 20070827, end: 20071024
  3. AMOBAN [Concomitant]
     Indication: DEPRESSION
     Dosage: 7.5MG PER DAY
     Route: 048
     Dates: start: 20071025
  4. DEPAS [Concomitant]
     Indication: DEPRESSION
     Dosage: 2MG PER DAY
     Route: 048
     Dates: start: 20071025
  5. ARTANE [Concomitant]
     Indication: DEPRESSION
     Dosage: 6MG PER DAY
     Route: 048
     Dates: start: 20071113
  6. AMOXAN [Concomitant]
     Dosage: 60MG PER DAY
     Route: 048
     Dates: start: 20071025, end: 20071102
  7. AMOXAN [Concomitant]
     Dosage: 100MG PER DAY
     Route: 048
     Dates: start: 20071103, end: 20071113
  8. AMOXAN [Concomitant]
     Dosage: 80MG PER DAY
     Route: 048
     Dates: start: 20071114, end: 20071116
  9. AMOXAN [Concomitant]
     Dosage: 60MG PER DAY
     Route: 048
     Dates: start: 20071117, end: 20071119
  10. AMOXAN [Concomitant]
     Dosage: 40MG PER DAY
     Route: 048
     Dates: start: 20071120, end: 20071121

REACTIONS (12)
  - BLOOD PRESSURE FLUCTUATION [None]
  - CHILLS [None]
  - DIZZINESS [None]
  - DYSPEPSIA [None]
  - FEELING ABNORMAL [None]
  - FEELING DRUNK [None]
  - HYPERHIDROSIS [None]
  - IRRITABILITY [None]
  - MYOCLONUS [None]
  - NAUSEA [None]
  - PYREXIA [None]
  - SEROTONIN SYNDROME [None]
